FAERS Safety Report 15746914 (Version 1)
Quarter: 2018Q4

REPORT INFORMATION
  Report Type: Spontaneous
  Country: DE (occurrence: DE)
  Receive Date: 20181220
  Receipt Date: 20181220
  Transmission Date: 20190205
  Serious: Yes (Other)
  Sender: FDA-Public Use
  Company Number: PHHY2018DE188439

PATIENT
  Sex: Male

DRUGS (1)
  1. SANDIMMUNE NEORAL [Suspect]
     Active Substance: CYCLOSPORINE
     Indication: RHEUMATOID ARTHRITIS
     Dosage: 25 MG, (758 MG ? 0 ? 75 MG)
     Route: 065

REACTIONS (2)
  - Carotid artery disease [Unknown]
  - Blood cholesterol increased [Unknown]
